FAERS Safety Report 9847141 (Version 1)
Quarter: 2014Q1

REPORT INFORMATION
  Report Type: Spontaneous
  Country: CA (occurrence: CA)
  Receive Date: 20140127
  Receipt Date: 20140127
  Transmission Date: 20141002
  Serious: Yes (Other)
  Sender: FDA-Public Use
  Company Number: CA-UCBSA-109484

PATIENT
  Sex: Female

DRUGS (1)
  1. VIMPAT [Suspect]
     Dates: start: 201311

REACTIONS (2)
  - Hemiparesis [Unknown]
  - Muscle spasticity [Unknown]
